FAERS Safety Report 14891246 (Version 1)
Quarter: 2018Q2

REPORT INFORMATION
  Report Type: Spontaneous
  Country: US (occurrence: US)
  Receive Date: 20180514
  Receipt Date: 20180514
  Transmission Date: 20180711
  Serious: No
  Sender: FDA-Public Use
  Company Number: US-UNITED THERAPEUTICS-UNT-2017-017298

PATIENT
  Age: 71 Year
  Sex: Female
  Weight: 60.77 kg

DRUGS (1)
  1. REMODULIN [Suspect]
     Active Substance: TREPROSTINIL
     Indication: PULMONARY ARTERIAL HYPERTENSION
     Dosage: 0.039 ?G/KG, CONTINUING
     Route: 041
     Dates: start: 20171002

REACTIONS (5)
  - Chest pain [Unknown]
  - Fatigue [Not Recovered/Not Resolved]
  - Dizziness [Unknown]
  - Asthenia [Unknown]
  - Oxygen saturation decreased [Unknown]

NARRATIVE: CASE EVENT DATE: 2017
